FAERS Safety Report 5150222-X (Version None)
Quarter: 2006Q4

REPORT INFORMATION
  Report Type: 
  Country: None (occurrence: None)
  Receive Date: 20061109
  Receipt Date: 20061109
  Transmission Date: 20070319
  Serious: Yes (Hospitalization)
  Sender: FDA-Public Use
  Company Number: None

PATIENT
  Sex: Male
  Weight: 65.56 kg

DRUGS (2)
  1. FENOFIBRATE [Suspect]
     Indication: SCHIZOPHRENIA, PARANOID TYPE
     Dosage: 145 MG HS PO
     Route: 048
     Dates: start: 20060515, end: 20061024
  2. DIVALPROEX SODIUM EXTENDED RELEASE [Suspect]
     Indication: SCHIZOPHRENIA, PARANOID TYPE
     Dosage: 2000 MG HS PO
     Route: 048
     Dates: start: 20060717, end: 20061107

REACTIONS (1)
  - PANCREATITIS [None]
